FAERS Safety Report 8812171 (Version 1)
Quarter: 2012Q4

REPORT INFORMATION
  Report Type: 
  Country: FI (occurrence: FI)
  Receive Date: 20120927
  Receipt Date: 20120927
  Transmission Date: 20130627
  Serious: Yes (Hospitalization)
  Sender: FDA-Public Use
  Company Number: FI-ELI_LILLY_AND_COMPANY-FI201209004872

PATIENT
  Sex: Male

DRUGS (5)
  1. FORSTEO [Suspect]
     Indication: OSTEOPOROSIS
     Dosage: 20 ug, qd
     Route: 058
     Dates: start: 20120528
  2. CORTISONE [Concomitant]
     Indication: PULMONARY FIBROSIS
     Dosage: UNK
     Dates: start: 2006
  3. ZOLT [Concomitant]
     Indication: PROPHYLAXIS AGAINST GASTROINTESTINAL ULCER
     Dosage: UNK
  4. COCILLANA                          /00359102/ [Concomitant]
     Indication: COUGH
     Dosage: UNK
  5. VITAMIN D [Concomitant]
     Indication: MEDICAL DIET
     Dosage: UNK

REACTIONS (1)
  - Pyrexia [Recovered/Resolved]
